FAERS Safety Report 10665669 (Version 2)
Quarter: 2014Q4

REPORT INFORMATION
  Report Type: Spontaneous
  Country: US (occurrence: US)
  Receive Date: 20141219
  Receipt Date: 20141219
  Transmission Date: 20150529
  Serious: No
  Sender: FDA-Public Use
  Company Number: US-SHIONOGI, INC-2014000933

PATIENT
  Age: 56 Year
  Sex: Female

DRUGS (2)
  1. NEXIUM [Concomitant]
     Active Substance: ESOMEPRAZOLE MAGNESIUM
     Indication: PRODUCT USED FOR UNKNOWN INDICATION
     Dosage: 20 MG, EVERY 3RD DAY
     Route: 065
  2. OSPHENA [Suspect]
     Active Substance: OSPEMIFENE
     Indication: DYSPAREUNIA
     Dosage: 60 MG, QD WITH FOOD
     Route: 048
     Dates: start: 20140901, end: 20140915

REACTIONS (6)
  - Restlessness [Unknown]
  - Libido increased [Recovered/Resolved]
  - Insomnia [Recovering/Resolving]
  - Fatigue [Unknown]
  - Energy increased [Unknown]
  - Vaginal discharge [Recovering/Resolving]

NARRATIVE: CASE EVENT DATE: 201409
